FAERS Safety Report 12047346 (Version 1)
Quarter: 2016Q1

REPORT INFORMATION
  Report Type: Spontaneous
  Country: US (occurrence: US)
  Receive Date: 20160209
  Receipt Date: 20160209
  Transmission Date: 20160526
  Serious: No
  Sender: FDA-Public Use
  Company Number: US-009507513-1602USA001895

PATIENT
  Age: 26 Year
  Sex: Female
  Weight: 81.63 kg

DRUGS (1)
  1. NUVARING [Suspect]
     Active Substance: ETHINYL ESTRADIOL\ETONOGESTREL
     Indication: MENSTRUAL CYCLE MANAGEMENT
     Dosage: ONE RING FOR 3 WEEKS AND REMOVE IT ONLY FOR 4 DAYS AND RE INSERTED A NEW ONE
     Route: 067

REACTIONS (4)
  - Inappropriate schedule of drug administration [Unknown]
  - Haemorrhage [Not Recovered/Not Resolved]
  - Abnormal withdrawal bleeding [Unknown]
  - Product use issue [Unknown]

NARRATIVE: CASE EVENT DATE: 20160128
